FAERS Safety Report 11926641 (Version 1)
Quarter: 2016Q1

REPORT INFORMATION
  Report Type: Spontaneous
  Country: US (occurrence: US)
  Receive Date: 20160119
  Receipt Date: 20160119
  Transmission Date: 20160526
  Serious: Yes (Hospitalization)
  Sender: FDA-Public Use
  Company Number: US-GLAXOSMITHKLINE-US2016004037

PATIENT
  Age: 63 Year
  Sex: Female

DRUGS (1)
  1. VENTOLIN HFA [Suspect]
     Active Substance: ALBUTEROL SULFATE
     Indication: MULTIPLE ALLERGIES
     Dosage: UNK, PRN
     Route: 055
     Dates: start: 2011

REACTIONS (6)
  - Bronchitis [Unknown]
  - Malaise [Recovering/Resolving]
  - Wheezing [Recovering/Resolving]
  - Expired product administered [Unknown]
  - Product use issue [Unknown]
  - Laryngitis [Unknown]

NARRATIVE: CASE EVENT DATE: 201510
